FAERS Safety Report 21690598 (Version 1)
Quarter: 2022Q4

REPORT INFORMATION
  Report Type: Spontaneous
  Country: None (occurrence: FR)
  Receive Date: 20221206
  Receipt Date: 20221206
  Transmission Date: 20230113
  Serious: Yes (Hospitalization)
  Sender: FDA-Public Use
  Company Number: FR-Canton Laboratories, LLC-2135623

PATIENT
  Age: 71 Year
  Sex: Male

DRUGS (14)
  1. NAPROSYN [Suspect]
     Active Substance: NAPROXEN
     Indication: Product used for unknown indication
     Route: 065
  2. HEPARIN CALCIUM [Suspect]
     Active Substance: HEPARIN CALCIUM
     Route: 058
     Dates: start: 20220912, end: 20220920
  3. KARDEGIC [Concomitant]
     Active Substance: ASPIRIN DL-LYSINE
  4. SODIUM BICARBONATE [Concomitant]
     Active Substance: SODIUM BICARBONATE
  5. RILMENIDINE PHOSPHATE [Concomitant]
     Active Substance: RILMENIDINE PHOSPHATE
  6. KAYEXALATE [Concomitant]
     Active Substance: SODIUM POLYSTYRENE SULFONATE
  7. ALFACALCIDOL [Concomitant]
     Active Substance: ALFACALCIDOL
  8. ATENOLOL [Concomitant]
     Active Substance: ATENOLOL
  9. FENTANYL [Concomitant]
     Active Substance: FENTANYL
  10. PRAVASTATIN [Concomitant]
     Active Substance: PRAVASTATIN
  11. ALFUZOSIN [Concomitant]
     Active Substance: ALFUZOSIN
  12. INSULIN NOS [Concomitant]
     Active Substance: INSULIN NOS
  13. IRBESARTAN [Concomitant]
     Active Substance: IRBESARTAN
  14. LORAZEPAM [Concomitant]
     Active Substance: LORAZEPAM

REACTIONS (3)
  - Haemorrhage [Recovered/Resolved]
  - Retroperitoneal haemorrhage [Unknown]
  - Haematoma muscle [Unknown]

NARRATIVE: CASE EVENT DATE: 20220919
